FAERS Safety Report 8538351-1 (Version None)
Quarter: 2012Q3

REPORT INFORMATION
  Report Type: 
  Country: None (occurrence: None)
  Receive Date: 20120726
  Receipt Date: 20120720
  Transmission Date: 20120928
  Serious: No
  Sender: FDA-Public Use
  Company Number: US-PFIZER INC-2012065917

PATIENT
  Sex: Male
  Weight: 88.435 kg

DRUGS (3)
  1. FLECTOR [Suspect]
     Indication: BACK PAIN
     Dosage: UNK,EVERY TWELVE HOURS
     Dates: start: 20120307, end: 20120308
  2. JANUMET [Concomitant]
     Indication: DIABETES MELLITUS
     Dosage: METFORMIN HYDROCHLORIDE 500 MG/SITAGLIPTIN 50 MG, 2X/DAY
     Route: 048
  3. FLECTOR [Suspect]
     Dosage: UNK,EVERY TWELVE HOURS
     Dates: start: 20120312

REACTIONS (2)
  - PRODUCT ADHESION ISSUE [None]
  - MALABSORPTION [None]
